FAERS Safety Report 21726385 (Version 1)
Quarter: 2022Q4

REPORT INFORMATION
  Report Type: Spontaneous
  Country: US (occurrence: US)
  Receive Date: 20221214
  Receipt Date: 20221214
  Transmission Date: 20230113
  Serious: Yes (Other)
  Sender: FDA-Public Use
  Company Number: US-MLMSERVICE-20221129-3948377-1

PATIENT
  Age: 55 Year
  Sex: Female

DRUGS (1)
  1. ULTRAM [Suspect]
     Active Substance: TRAMADOL HYDROCHLORIDE
     Indication: Neuropathy peripheral
     Route: 065

REACTIONS (4)
  - Lupus-like syndrome [Unknown]
  - Neuropathy peripheral [Unknown]
  - Paradoxical drug reaction [Unknown]
  - Treatment failure [Unknown]
